FAERS Safety Report 6138420-X (Version None)
Quarter: 2009Q1

REPORT INFORMATION
  Report Type: 
  Country: None (occurrence: None)
  Receive Date: 20090331
  Receipt Date: 20090323
  Transmission Date: 20090719
  Serious: Yes (Hospitalization)
  Sender: FDA-Public Use
  Company Number: US-ELI_LILLY_AND_COMPANY-US200903005656

PATIENT
  Sex: Male

DRUGS (4)
  1. HUMULIN 50/50 [Suspect]
     Indication: DIABETES MELLITUS
     Dosage: 50 U, DAILY (1/D)
  2. LANTUS [Concomitant]
     Indication: DIABETES MELLITUS
     Dosage: 75 U, DAILY (1/D)
  3. NOVOLIN N [Concomitant]
     Indication: DIABETES MELLITUS
     Dosage: 15 U, DAILY (1/D)
  4. NOVOLIN R [Concomitant]
     Indication: DIABETES MELLITUS
     Dosage: 15 U, DAILY (1/D)

REACTIONS (6)
  - ARTERECTOMY WITH GRAFT REPLACEMENT [None]
  - BLOOD GLUCOSE DECREASED [None]
  - BLOOD GLUCOSE INCREASED [None]
  - FALL [None]
  - GAIT DISTURBANCE [None]
  - VISUAL ACUITY REDUCED [None]
